FAERS Safety Report 20419028 (Version 2)
Quarter: 2022Q1

REPORT INFORMATION
  Report Type: Spontaneous
  Country: SE (occurrence: SE)
  Receive Date: 20220203
  Receipt Date: 20220211
  Transmission Date: 20220423
  Serious: Yes (Other)
  Sender: FDA-Public Use
  Company Number: SE-VELOXIS PHARMACEUTICALS-2022VELSE-000030

PATIENT
  Age: 42 Year
  Sex: Female

DRUGS (5)
  1. TACROLIMUS [Suspect]
     Active Substance: TACROLIMUS
     Indication: Proteinuria
     Dosage: UNK
     Route: 065
  2. TACROLIMUS [Suspect]
     Active Substance: TACROLIMUS
     Indication: Glomerulonephritis
  3. ALISKIREN [Suspect]
     Active Substance: ALISKIREN
     Indication: Product used for unknown indication
     Dosage: UNK
     Route: 065
  4. CORTISONE [Suspect]
     Active Substance: CORTISONE
     Indication: Product used for unknown indication
     Dosage: UNK
     Route: 065
  5. DAPAGLIFLOZIN [Suspect]
     Active Substance: DAPAGLIFLOZIN
     Indication: Product used for unknown indication
     Dosage: UNK
     Route: 065

REACTIONS (9)
  - Nephrotic syndrome [Unknown]
  - Blood albumin decreased [Unknown]
  - Glomerulonephritis membranoproliferative [Unknown]
  - Ill-defined disorder [Unknown]
  - Drug ineffective for unapproved indication [Unknown]
  - Abdominal discomfort [Unknown]
  - Tremor [Unknown]
  - COVID-19 [Unknown]
  - Off label use [Unknown]
